FAERS Safety Report 9378870 (Version 3)
Quarter: 2013Q3

REPORT INFORMATION
  Report Type: Spontaneous
  Country: US (occurrence: US)
  Receive Date: 20130702
  Receipt Date: 20130730
  Transmission Date: 20140515
  Serious: No
  Sender: FDA-Public Use
  Company Number: US-PFIZER INC-2013192964

PATIENT
  Age: 68 Year
  Sex: Male

DRUGS (1)
  1. INLYTA [Suspect]
     Indication: MALIGNANT URINARY TRACT NEOPLASM
     Dosage: 15 MG (1 TABLET IN MORNING AND 2 TABLETS IN THE EVENING)
     Dates: start: 20130626

REACTIONS (7)
  - Mouth ulceration [Unknown]
  - Oral pain [Unknown]
  - Diarrhoea [Unknown]
  - Fatigue [Unknown]
  - Irritability [Unknown]
  - Dizziness [Unknown]
  - Glossitis [Unknown]
